FAERS Safety Report 6668810-8 (Version None)
Quarter: 2010Q2

REPORT INFORMATION
  Report Type: 
  Country: None (occurrence: None)
  Receive Date: 20100406
  Receipt Date: 20100325
  Transmission Date: 20101027
  Serious: Yes (Hospitalization)
  Sender: FDA-Public Use
  Company Number: US-SANOFI-AVENTIS-2010SA017151

PATIENT
  Age: 65 Year
  Sex: Female

DRUGS (9)
  1. FLUOROURACIL [Suspect]
     Indication: RECTAL CANCER METASTATIC
     Route: 041
  2. OXALIPLATIN [Suspect]
     Indication: RECTAL CANCER METASTATIC
     Route: 041
  3. LEUCOVORIN CALCIUM [Suspect]
     Indication: RECTAL CANCER METASTATIC
     Route: 065
  4. BEVACIZUMAB [Suspect]
     Indication: RECTAL CANCER METASTATIC
     Route: 041
  5. OXYCODONE [Concomitant]
     Indication: DRUG USE FOR UNKNOWN INDICATION
     Route: 048
  6. DOCUSATE SODIUM [Concomitant]
     Indication: CONSTIPATION
     Route: 048
  7. PROCHLORPERAZINE [Concomitant]
     Indication: NAUSEA
     Route: 048
  8. LOPERAMIDE [Concomitant]
     Route: 048
  9. OXYCODONE [Concomitant]
     Indication: PAIN
     Route: 048

REACTIONS (5)
  - ABNORMAL BEHAVIOUR [None]
  - ACUTE PSYCHOSIS [None]
  - AGITATION [None]
  - CONFUSIONAL STATE [None]
  - HALLUCINATION, VISUAL [None]
